FAERS Safety Report 14344090 (Version 3)
Quarter: 2018Q3

REPORT INFORMATION
  Report Type: Spontaneous
  Country: US (occurrence: US)
  Receive Date: 20180102
  Receipt Date: 20180830
  Transmission Date: 20181010
  Serious: Yes (Hospitalization, Other)
  Sender: FDA-Public Use
  Company Number: US-DSJP-DSU-2017-140719

PATIENT

DRUGS (2)
  1. BENICAR [Suspect]
     Active Substance: OLMESARTAN MEDOXOMIL
     Dosage: 40 MG, QD
     Route: 048
     Dates: start: 20141216, end: 20150608
  2. BENICAR [Suspect]
     Active Substance: OLMESARTAN MEDOXOMIL
     Indication: HYPERTENSION
     Dosage: 20 MG, QD
     Route: 048
     Dates: start: 20100101, end: 20150101

REACTIONS (9)
  - Acute kidney injury [Unknown]
  - Syncope [Recovering/Resolving]
  - Diverticulum [Unknown]
  - Gastrointestinal haemorrhage [Unknown]
  - Gastrooesophageal reflux disease [Not Recovered/Not Resolved]
  - Rectal haemorrhage [Recovering/Resolving]
  - Diverticulitis [Recovering/Resolving]
  - Umbilical hernia [Recovering/Resolving]
  - Sprue-like enteropathy [Recovering/Resolving]

NARRATIVE: CASE EVENT DATE: 2014
